FAERS Safety Report 20050640 (Version 1)
Quarter: 2021Q4

REPORT INFORMATION
  Report Type: Spontaneous
  Country: FR (occurrence: FR)
  Receive Date: 20211109
  Receipt Date: 20211109
  Transmission Date: 20220303
  Serious: Yes (Other)
  Sender: FDA-Public Use
  Company Number: FR-BIOVITRUM-2021FR9893

PATIENT
  Age: 3 Year
  Sex: Male

DRUGS (4)
  1. KINERET [Suspect]
     Active Substance: ANAKINRA
     Indication: Still^s disease
  2. KINERET [Suspect]
     Active Substance: ANAKINRA
  3. KINERET [Suspect]
     Active Substance: ANAKINRA
  4. TOCILIZUMAB [Suspect]
     Active Substance: TOCILIZUMAB
     Indication: Product used for unknown indication

REACTIONS (4)
  - Interstitial lung disease [Not Recovered/Not Resolved]
  - Clubbing [Not Recovered/Not Resolved]
  - Lung disorder [Not Recovered/Not Resolved]
  - Rash [Not Recovered/Not Resolved]
